FAERS Safety Report 16712244 (Version 4)
Quarter: 2019Q4

REPORT INFORMATION
  Report Type: Report from Study
  Country: US (occurrence: US)
  Receive Date: 20190816
  Receipt Date: 20191031
  Transmission Date: 20200122
  Serious: Yes (Other)
  Sender: FDA-Public Use
  Company Number: PHEH2019US033815

PATIENT
  Age: 78 Year
  Sex: Female

DRUGS (8)
  1. PROMACTA [Suspect]
     Active Substance: ELTROMBOPAG OLAMINE
     Indication: MYELODYSPLASTIC SYNDROME
     Route: 065
  2. ARANESP [Concomitant]
     Active Substance: DARBEPOETIN ALFA
     Indication: HAEMOGLOBIN DECREASED
     Dosage: 500 MG, EVERY 3 WEEKS
     Route: 065
  3. PROMACTA [Suspect]
     Active Substance: ELTROMBOPAG OLAMINE
     Dosage: 75 MG, UNK
     Route: 065
  4. PLAVIX [Concomitant]
     Active Substance: CLOPIDOGREL BISULFATE
     Indication: PRODUCT USED FOR UNKNOWN INDICATION
     Route: 065
  5. CHLORTHALIDONE. [Suspect]
     Active Substance: CHLORTHALIDONE
     Indication: PRODUCT USED FOR UNKNOWN INDICATION
     Route: 065
  6. ASPIRINE [Concomitant]
     Active Substance: ASPIRIN
     Indication: PRODUCT USED FOR UNKNOWN INDICATION
     Route: 065
  7. ZOLOFT [Suspect]
     Active Substance: SERTRALINE HYDROCHLORIDE
     Indication: PRODUCT USED FOR UNKNOWN INDICATION
     Route: 065
  8. VANTIN [Concomitant]
     Active Substance: CEFPODOXIME PROXETIL
     Indication: NEUTROPENIA
     Dosage: 200 MG, BID
     Route: 065

REACTIONS (31)
  - Orthostatic hypotension [Unknown]
  - Blood pressure systolic increased [Unknown]
  - Blood creatinine increased [Unknown]
  - Blood sodium decreased [Unknown]
  - Cataract [Unknown]
  - Hepatic cyst [Unknown]
  - Abdominal discomfort [Unknown]
  - Back pain [Unknown]
  - Jaundice [Unknown]
  - Renal cyst [Unknown]
  - Red cell distribution width increased [Unknown]
  - White blood cell count decreased [Unknown]
  - Haemoglobin decreased [Unknown]
  - Blood potassium increased [Unknown]
  - Weight increased [Unknown]
  - Joint swelling [Unknown]
  - Product use in unapproved indication [Unknown]
  - Retroperitoneal haemorrhage [Recovering/Resolving]
  - Mean cell haemoglobin increased [Unknown]
  - Oedema peripheral [Recovering/Resolving]
  - Platelet count decreased [Unknown]
  - Aortic aneurysm [Unknown]
  - Blood chloride decreased [Unknown]
  - Blood albumin decreased [Unknown]
  - Mean cell volume increased [Unknown]
  - Hydronephrosis [Unknown]
  - Renal atrophy [Unknown]
  - Haemolysis [Unknown]
  - Blood glucose increased [Unknown]
  - Blood urea increased [Unknown]
  - Blood pressure diastolic decreased [Unknown]

NARRATIVE: CASE EVENT DATE: 20190214
